FAERS Safety Report 19249008 (Version 3)
Quarter: 2021Q2

REPORT INFORMATION
  Report Type: Report from Study
  Country: FR (occurrence: FR)
  Receive Date: 20210512
  Receipt Date: 20210614
  Transmission Date: 20210717
  Serious: Yes (Life-Threatening, Other)
  Sender: FDA-Public Use
  Company Number: FR-AMGEN-FRACT2021071556

PATIENT
  Age: 54 Year
  Sex: Female
  Weight: 85 kg

DRUGS (14)
  1. SULFAMERAZINE;TRIMETHOPRIM [Concomitant]
     Dosage: UNK
  2. CALCIUM FOLINATE [Concomitant]
     Active Substance: LEUCOVORIN CALCIUM
     Dosage: UNK
  3. DEXAMETHASONE. [Concomitant]
     Active Substance: DEXAMETHASONE
     Dosage: 40 MILLIGRAM, QD
     Dates: start: 20200928
  4. FENOFIBRATE. [Concomitant]
     Active Substance: FENOFIBRATE
     Dosage: UNK
  5. VALACICLOVIR [Concomitant]
     Active Substance: VALACYCLOVIR HYDROCHLORIDE
     Dosage: UNK
  6. CARFILZOMIB [Suspect]
     Active Substance: CARFILZOMIB
     Indication: PLASMA CELL MYELOMA
     Dosage: 38 MILLIGRAM, PER CHEMO REGIM
     Route: 042
     Dates: start: 20200928
  7. FILGRASTIM [Concomitant]
     Active Substance: FILGRASTIM
     Indication: NEUTROPENIA
     Dosage: UNK
     Dates: start: 20201104, end: 20201106
  8. POMALIDOMIDE [Suspect]
     Active Substance: POMALIDOMIDE
     Indication: PLASMA CELL MYELOMA
     Dosage: UNK UNK, PER CHEMO REGIM
     Route: 048
     Dates: start: 20200928
  9. LANSOPRAZOLE. [Concomitant]
     Active Substance: LANSOPRAZOLE
     Dosage: UNK
  10. CARFILZOMIB [Suspect]
     Active Substance: CARFILZOMIB
     Dosage: 70 MILLIGRAM/SQ. METER, PER CHEMO REGIM
     Route: 042
  11. CARFILZOMIB [Suspect]
     Active Substance: CARFILZOMIB
     Dosage: 105.2 MILLIGRAM, PER CHEMO REGIM
     Route: 042
  12. METFORMIN [Concomitant]
     Active Substance: METFORMIN HYDROCHLORIDE
     Dosage: UNK
  13. ISATUXIMAB [Suspect]
     Active Substance: ISATUXIMAB
     Indication: PLASMA CELL MYELOMA
     Dosage: 20 MILLIGRAM PER MILLILITRE, PER CHEMO REGIM
     Route: 042
     Dates: start: 20200928
  14. ENOXAPARIN [Concomitant]
     Active Substance: ENOXAPARIN

REACTIONS (1)
  - Neutropenia [Recovered/Resolved]

NARRATIVE: CASE EVENT DATE: 20201110
